FAERS Safety Report 12166181 (Version 1)
Quarter: 2016Q1

REPORT INFORMATION
  Report Type: Report from Study
  Country: US (occurrence: US)
  Receive Date: 20160309
  Receipt Date: 20160309
  Transmission Date: 20160526
  Serious: No
  Sender: FDA-Public Use
  Company Number: GXBR2016US000645

PATIENT
  Age: 5 Year
  Sex: Female

DRUGS (2)
  1. OMNITROPE [Suspect]
     Active Substance: SOMATROPIN
     Indication: HYPOPITUITARISM
     Dosage: 0.6 MG, QD
     Route: 065
     Dates: start: 201510
  2. CLARITIN [Concomitant]
     Active Substance: LORATADINE
     Indication: RHINORRHOEA
     Dosage: UNK DF, PRN

REACTIONS (3)
  - Nightmare [Not Recovered/Not Resolved]
  - Pain in extremity [Not Recovered/Not Resolved]
  - Crying [Not Recovered/Not Resolved]

NARRATIVE: CASE EVENT DATE: 20160204
